FAERS Safety Report 5188034-3 (Version None)
Quarter: 2006Q4

REPORT INFORMATION
  Report Type: 
  Country: None (occurrence: None)
  Receive Date: 20061214
  Receipt Date: 20061130
  Transmission Date: 20070319
  Serious: Yes (Death, Hospitalization)
  Sender: FDA-Public Use
  Company Number: TNZFR200600133

PATIENT
  Age: 92 Year
  Sex: Female
  Weight: 45.5 kg

DRUGS (2)
  1. INNOHEP [Suspect]
     Indication: DEEP VEIN THROMBOSIS
     Dosage: SUBCUTANEOUS
     Route: 058
     Dates: start: 20061020, end: 20061024
  2. COUMADIN [Concomitant]

REACTIONS (11)
  - GENERAL PHYSICAL HEALTH DETERIORATION [None]
  - HYPOTENSION [None]
  - INTERNATIONAL NORMALISED RATIO INCREASED [None]
  - LOSS OF CONSCIOUSNESS [None]
  - LYMPHOMA [None]
  - MALIGNANT NEOPLASM PROGRESSION [None]
  - PAIN [None]
  - PLEURAL DISORDER [None]
  - PLEURAL EFFUSION [None]
  - RENAL FAILURE [None]
  - SUBILEUS [None]
